FAERS Safety Report 9157644 (Version 1)
Quarter: 2013Q1

REPORT INFORMATION
  Report Type: Spontaneous
  Country: US (occurrence: None)
  Receive Date: 20130213
  Receipt Date: 20130213
  Transmission Date: 20140127
  Serious: Yes (Hospitalization)
  Sender: FDA-Public Use
  Company Number: 1592558

PATIENT
  Age: 44 Year
  Sex: Female

DRUGS (3)
  1. EPINEPHRINE [Suspect]
     Indication: ANAPHYLACTIC REACTION
     Route: 042
  2. (ALBUTEROL /00139501/) [Concomitant]
  3. OXYGEN [Concomitant]

REACTIONS (11)
  - Stress cardiomyopathy [None]
  - Respiratory distress [None]
  - Headache [None]
  - Loss of consciousness [None]
  - Haemoptysis [None]
  - Productive cough [None]
  - Tachycardia [None]
  - Peripheral coldness [None]
  - Pulmonary oedema [None]
  - Medication error [None]
  - Drug interaction [None]
